FAERS Safety Report 16586450 (Version 1)
Quarter: 2019Q3

REPORT INFORMATION
  Report Type: Spontaneous
  Country: FR (occurrence: FR)
  Receive Date: 20190717
  Receipt Date: 20190717
  Transmission Date: 20191004
  Serious: Yes (Disabling)
  Sender: FDA-Public Use
  Company Number: FR-NOVOPROD-672213

PATIENT
  Age: 43 Year
  Sex: Female

DRUGS (2)
  1. ESTRADIOL. [Suspect]
     Active Substance: ESTRADIOL
     Indication: ACNE
     Dosage: NON RENSEIGNEE(UNSPECIFIED)
     Route: 048
     Dates: start: 2008, end: 201711
  2. ANDROCUR [Suspect]
     Active Substance: CYPROTERONE ACETATE
     Indication: ACNE
     Dosage: NON RENSEIGNEE(UNSPECIFIED)
     Route: 048
     Dates: start: 2008, end: 201711

REACTIONS (2)
  - Off label use [Unknown]
  - Meningioma [Not Recovered/Not Resolved]

NARRATIVE: CASE EVENT DATE: 2008
